FAERS Safety Report 21095875 (Version 2)
Quarter: 2022Q3

REPORT INFORMATION
  Report Type: Spontaneous
  Country: US (occurrence: US)
  Receive Date: 20220718
  Receipt Date: 20220824
  Transmission Date: 20221027
  Serious: No
  Sender: FDA-Public Use
  Company Number: US-GLENMARK PHARMACEUTICALS-2022GMK072397

PATIENT

DRUGS (2)
  1. TELMISARTAN [Suspect]
     Active Substance: TELMISARTAN
     Indication: Blood pressure abnormal
     Dosage: 40 MILLIGRAM, OD
     Route: 048
  2. TELMISARTAN [Suspect]
     Active Substance: TELMISARTAN
     Dosage: 40 MILLIGRAM, BID (40 MG TAB IN THE MORNING, 40 MG AT NIGHT)
     Route: 048

REACTIONS (3)
  - Intentional product misuse [Unknown]
  - Blood pressure increased [Unknown]
  - Therapeutic product effect decreased [Unknown]
